FAERS Safety Report 9382302 (Version 1)
Quarter: 2013Q3

REPORT INFORMATION
  Report Type: Spontaneous
  Country: CA (occurrence: CA)
  Receive Date: 20130703
  Receipt Date: 20130703
  Transmission Date: 20140515
  Serious: Yes (Hospitalization)
  Sender: FDA-Public Use
  Company Number: CA-ALLERGAN-1309674US

PATIENT
  Age: 66 Year
  Sex: Female

DRUGS (2)
  1. BOTOX? [Suspect]
     Indication: MUSCLE SPASTICITY
     Dosage: 300 UNITS, SINGLE
     Dates: start: 20130611, end: 20130611
  2. BOTOX? [Suspect]
     Dosage: UNK
     Dates: start: 201204, end: 201204

REACTIONS (3)
  - Pneumonia aspiration [Not Recovered/Not Resolved]
  - Dysphagia [Unknown]
  - Malaise [Unknown]
